FAERS Safety Report 6677365-3 (Version None)
Quarter: 2010Q2

REPORT INFORMATION
  Report Type: 
  Country: None (occurrence: None)
  Receive Date: 20100409
  Receipt Date: 20100409
  Transmission Date: 20101027
  Serious: Yes (Other)
  Sender: FDA-Public Use
  Company Number: None

PATIENT
  Sex: Female
  Weight: 64.8644 kg

DRUGS (1)
  1. AVELOX [Suspect]
     Indication: SINUSITIS
     Dosage: 400 MG 1 DAILY ORAL
     Route: 048
     Dates: start: 20100307, end: 20100312

REACTIONS (2)
  - PARAESTHESIA [None]
  - TEMPERATURE INTOLERANCE [None]
